FAERS Safety Report 4534159-2 (Version None)
Quarter: 2004Q4

REPORT INFORMATION
  Report Type: 
  Country: None (occurrence: None)
  Receive Date: 20041221
  Receipt Date: 20041221
  Transmission Date: 20050328
  Serious: Yes (Hospitalization)
  Sender: FDA-Public Use
  Company Number: None

PATIENT
  Sex: Male
  Weight: 65.318 kg

DRUGS (3)
  1. ELOXATIN [Suspect]
     Indication: COLON CANCER
     Dosage: 153MG IV
     Route: 042
     Dates: start: 20041110
  2. FLUOROURACIL [Suspect]
     Dosage: 5040MG
     Dates: start: 20041124
  3. LEUCOVORIN  720MG  BEDFORD [Suspect]
     Dosage: 720MG
     Dates: start: 20041124

REACTIONS (2)
  - ARTERITIS [None]
  - CAROTID ARTERY DISEASE [None]
